FAERS Safety Report 8837847 (Version 1)
Quarter: 2012Q4

REPORT INFORMATION
  Report Type: 
  Country: US (occurrence: US)
  Receive Date: 20121012
  Receipt Date: 20121012
  Transmission Date: 20130627
  Serious: Yes (Other)
  Sender: FDA-Public Use
  Company Number: US-ROCHE-1130785

PATIENT
  Sex: Male

DRUGS (3)
  1. RITUXAN [Suspect]
     Indication: IDIOPATHIC THROMBOCYTOPENIC PURPURA
     Route: 065
     Dates: start: 20020204
  2. RITUXAN [Suspect]
     Indication: OFF LABEL USE
  3. WINRHO [Concomitant]
     Route: 065
     Dates: start: 20020204

REACTIONS (2)
  - Platelet count decreased [Unknown]
  - Drug ineffective [Unknown]
